FAERS Safety Report 10135295 (Version 2)
Quarter: 2014Q2

REPORT INFORMATION
  Report Type: Other
  Country: US (occurrence: US)
  Receive Date: 20140428
  Receipt Date: 20140611
  Transmission Date: 20141212
  Serious: Yes (Hospitalization, Other)
  Sender: FDA-Public Use
  Company Number: US-GSKPPD-2014GSK036945

PATIENT
  Age: 58 Year
  Sex: Male

DRUGS (6)
  1. AVANDIA [Suspect]
     Indication: DIABETES MELLITUS
     Route: 048
     Dates: start: 20040610, end: 20110504
  2. AVANDAMET [Suspect]
     Indication: DIABETES MELLITUS
     Dosage: 8/2000 MILLIGRAM
     Route: 048
     Dates: start: 20040909, end: 20110504
  3. ECOTRIN [Concomitant]
  4. PLAVIX [Concomitant]
  5. LOPRESSOR [Concomitant]
  6. SPIRONOLACTONE [Concomitant]

REACTIONS (3)
  - Myocardial infarction [None]
  - Coronary artery disease [Recovered/Resolved]
  - Ischaemic cardiomyopathy [Recovered/Resolved]
